FAERS Safety Report 26139739 (Version 1)
Quarter: 2025Q4

REPORT INFORMATION
  Report Type: Spontaneous
  Country: EU (occurrence: EU)
  Receive Date: 20251210
  Receipt Date: 20251210
  Transmission Date: 20260118
  Serious: Yes (Hospitalization)
  Sender: CHEPLAPHARM
  Company Number: None

PATIENT
  Age: 47 Year
  Sex: Male

DRUGS (7)
  1. QUETIAPINE [Suspect]
     Active Substance: QUETIAPINE
     Route: 048
     Dates: end: 20251030
  2. HALOPERIDOL DECANOATE [Suspect]
     Active Substance: HALOPERIDOL DECANOATE
     Dosage: INDUCTION WITH 150 MG
     Route: 030
     Dates: start: 20251001
  3. HALOPERIDOL DECANOATE [Suspect]
     Active Substance: HALOPERIDOL DECANOATE
     Dosage: NEW DOSE ON 08/10 WITH 100 MG.
     Route: 030
     Dates: start: 20251008
  4. VALPROATE SODIUM [Concomitant]
     Active Substance: VALPROATE SODIUM
     Dosage: 500MG, FREQUENCY UNKNOWN
     Route: 048
  5. CEFTRIAXONE SODIUM [Concomitant]
     Active Substance: CEFTRIAXONE SODIUM
     Route: 030
  6. MEDROL [Concomitant]
     Active Substance: METHYLPREDNISOLONE
  7. ADALIMUMAB [Concomitant]
     Active Substance: ADALIMUMAB
     Indication: Crohn^s disease

REACTIONS (5)
  - Cognitive disorder [Unknown]
  - Somnolence [Unknown]
  - Decreased appetite [Unknown]
  - Tremor [Unknown]
  - Bronchitis [Unknown]

NARRATIVE: CASE EVENT DATE: 20251025
